FAERS Safety Report 6055937-7 (Version None)
Quarter: 2009Q1

REPORT INFORMATION
  Report Type: 
  Country: None (occurrence: None)
  Receive Date: 20090128
  Receipt Date: 20090115
  Transmission Date: 20090719
  Serious: Yes (Hospitalization)
  Sender: FDA-Public Use
  Company Number: FR-B.I. PHARMACEUTICALS,INC./RIDGEFIELD-2008-FF-00915FF

PATIENT
  Age: 48 Year
  Sex: Female

DRUGS (5)
  1. SIFROL [Suspect]
     Indication: PARKINSON'S DISEASE
     Dosage: 3.15MG
     Route: 048
     Dates: start: 20071221
  2. MODOPAR [Concomitant]
     Dosage: 937.5MG
  3. LEVOTHYROX [Concomitant]
     Dosage: 50MCG
     Dates: start: 20081001
  4. PRAZEPAM [Concomitant]
  5. LAROXYL [Concomitant]

REACTIONS (3)
  - HYPOALBUMINAEMIA [None]
  - NEPHROTIC SYNDROME [None]
  - PROTEINURIA [None]
